FAERS Safety Report 18061873 (Version 2)
Quarter: 2020Q3

REPORT INFORMATION
  Report Type: Report from Study
  Country: MX (occurrence: MX)
  Receive Date: 20200723
  Receipt Date: 20200807
  Transmission Date: 20201103
  Serious: Yes (Other)
  Sender: FDA-Public Use
  Company Number: NVSC2020MX207460

PATIENT
  Age: 29 Year
  Sex: Male
  Weight: 100 kg

DRUGS (2)
  1. COSENTYX [Suspect]
     Active Substance: SECUKINUMAB
     Indication: PSORIASIS
     Dosage: 1 DF, Q2W (STARTED ONE YEAR AGO)
     Route: 058
     Dates: start: 201908
  2. COSENTYX [Suspect]
     Active Substance: SECUKINUMAB
     Dosage: 1 DF, QMO (150 MG)
     Route: 058
     Dates: end: 20200613

REACTIONS (11)
  - COVID-19 [Recovered/Resolved]
  - Respiratory disorder [Recovered/Resolved]
  - Pneumonia [Recovered/Resolved]
  - Weight decreased [Recovered/Resolved]
  - Pneumonitis [Not Recovered/Not Resolved]
  - Incorrect product administration duration [Unknown]
  - Myalgia [Unknown]
  - Fatigue [Unknown]
  - Headache [Unknown]
  - Musculoskeletal stiffness [Unknown]
  - Product prescribing error [Unknown]

NARRATIVE: CASE EVENT DATE: 202007
